FAERS Safety Report 6943855-9 (Version None)
Quarter: 2010Q3

REPORT INFORMATION
  Report Type: 
  Country: None (occurrence: None)
  Receive Date: 20100826
  Receipt Date: 20100818
  Transmission Date: 20110219
  Serious: Yes (Other)
  Sender: FDA-Public Use
  Company Number: A0876521A

PATIENT
  Age: 57 Year
  Sex: Female

DRUGS (4)
  1. SUMATRIPTAN SUCCINATE [Suspect]
     Indication: MIGRAINE
     Dosage: 100MG PER DAY
     Route: 048
     Dates: start: 20100728, end: 20100728
  2. ACIPHEX [Concomitant]
  3. VITAMINS [Concomitant]
  4. EFFEXOR XR [Concomitant]

REACTIONS (10)
  - ABNORMAL DREAMS [None]
  - AGITATION [None]
  - DRUG INEFFECTIVE [None]
  - FEELING JITTERY [None]
  - HALLUCINATION [None]
  - HYPERHIDROSIS [None]
  - POOR QUALITY SLEEP [None]
  - SLEEP TALKING [None]
  - SOMNOLENCE [None]
  - TREMOR [None]
